FAERS Safety Report 17331545 (Version 1)
Quarter: 2020Q1

REPORT INFORMATION
  Report Type: Report from Study
  Country: IT (occurrence: IT)
  Receive Date: 20200128
  Receipt Date: 20200128
  Transmission Date: 20200409
  Serious: Yes (Hospitalization)
  Sender: FDA-Public Use
  Company Number: IT-MYLANLABS-2020M1009884

PATIENT
  Age: 84 Year
  Sex: Female

DRUGS (9)
  1. BISOPROLOL FUMARATE. [Concomitant]
     Active Substance: BISOPROLOL FUMARATE
     Dosage: 5 MILLIGRAM
     Route: 048
  2. BARNIDIPINE HYDROCHLORIDE [Concomitant]
     Active Substance: BARNIDIPINE HYDROCHLORIDE
     Dosage: 10 MILLIGRAM
     Route: 048
  3. ENAPREN [Concomitant]
     Active Substance: ENALAPRIL MALEATE
     Dosage: UNK
  4. LANOXIN [Concomitant]
     Active Substance: DIGOXIN
     Dosage: UNK
  5. OMEPRAZOLE. [Suspect]
     Active Substance: OMEPRAZOLE
     Indication: GASTROOESOPHAGEAL REFLUX DISEASE
     Dosage: 1 DOSAGE FORM, QD
     Route: 048
  6. COUMADIN [Interacting]
     Active Substance: WARFARIN SODIUM
     Indication: ATRIAL FIBRILLATION
     Dosage: 1 DOSAGE FORM, PRN
     Route: 048
  7. CRESTOR [Interacting]
     Active Substance: ROSUVASTATIN CALCIUM
     Indication: PRODUCT USED FOR UNKNOWN INDICATION
     Dosage: 1 DOSAGE FORM, QD
     Route: 048
  8. LASIX [Concomitant]
     Active Substance: FUROSEMIDE
     Dosage: UNK
  9. ADENURIC [Concomitant]
     Active Substance: FEBUXOSTAT
     Dosage: UNK

REACTIONS (4)
  - Anaemia [Recovering/Resolving]
  - International normalised ratio increased [Recovering/Resolving]
  - Haematuria [Recovering/Resolving]
  - Drug interaction [Recovering/Resolving]

NARRATIVE: CASE EVENT DATE: 20191110
